FAERS Safety Report 21729568 (Version 3)
Quarter: 2022Q4

REPORT INFORMATION
  Report Type: Spontaneous
  Country: US (occurrence: US)
  Receive Date: 20221214
  Receipt Date: 20221219
  Transmission Date: 20230113
  Serious: Yes (Other)
  Sender: FDA-Public Use
  Company Number: US-PFIZER INC-PV202200120728

PATIENT
  Age: 55 Year
  Sex: Male

DRUGS (2)
  1. XELJANZ [Interacting]
     Active Substance: TOFACITINIB CITRATE
     Dosage: 5 MG
  2. AZATHIOPRINE [Interacting]
     Active Substance: AZATHIOPRINE
     Dosage: UNK

REACTIONS (5)
  - Immunosuppression [Unknown]
  - Nasopharyngitis [Recovered/Resolved]
  - Drug interaction [Unknown]
  - Therapeutic product effect incomplete [Unknown]
  - Product dose omission issue [Unknown]
